FAERS Safety Report 11117643 (Version 1)
Quarter: 2015Q2

REPORT INFORMATION
  Report Type: Spontaneous
  Country: US (occurrence: US)
  Receive Date: 20150517
  Receipt Date: 20150517
  Transmission Date: 20150821
  Serious: Yes (Death, Hospitalization)
  Sender: FDA-Public Use
  Company Number: US-ENDO PHARMACEUTICALS INC.-201501119

PATIENT
  Age: 62 Year
  Sex: Male
  Weight: 84.9 kg

DRUGS (2)
  1. TERAZOSIN [Concomitant]
     Active Substance: TERAZOSIN\TERAZOSIN HYDROCHLORIDE
     Indication: BENIGN PROSTATIC HYPERPLASIA
     Route: 065
  2. TESTIM [Suspect]
     Active Substance: TESTOSTERONE
     Indication: HYPOGONADISM
     Route: 062
     Dates: start: 200612, end: 201101

REACTIONS (2)
  - Pulmonary embolism [Fatal]
  - Prostate cancer metastatic [Fatal]

NARRATIVE: CASE EVENT DATE: 20110124
